FAERS Safety Report 6577033-2 (Version None)
Quarter: 2010Q1

REPORT INFORMATION
  Report Type: 
  Country: None (occurrence: None)
  Receive Date: 20100210
  Receipt Date: 20100201
  Transmission Date: 20100710
  Serious: Yes (Hospitalization, Disabling)
  Sender: FDA-Public Use
  Company Number: JP-BRISTOL-MYERS SQUIBB COMPANY-14524201

PATIENT
  Age: 71 Year
  Sex: Male
  Weight: 48 kg

DRUGS (4)
  1. ERBITUX [Suspect]
     Indication: RECTAL CANCER
     Dosage: 1ST INFUSION;500MG (71.4286MG) ON 08JAN09. 2ND INFUSION;300MG (42.8571MG) ON 15JAN09.
     Route: 042
     Dates: start: 20090108, end: 20090115
  2. IRINOTECAN HCL [Suspect]
     Indication: RECTAL CANCER
     Route: 042
     Dates: start: 20090108, end: 20090115
  3. DECADRON [Concomitant]
     Indication: PREMEDICATION
     Dosage: EVERY TIME BEFORE ERBITUX INF.
     Route: 042
     Dates: start: 20090108, end: 20090115
  4. CHLOR-TRIMETON [Concomitant]
     Route: 042

REACTIONS (5)
  - DIARRHOEA [None]
  - HYPOCHLORAEMIA [None]
  - HYPONATRAEMIA [None]
  - RASH [None]
  - SCAB [None]
